FAERS Safety Report 12070670 (Version 2)
Quarter: 2016Q1

REPORT INFORMATION
  Report Type: Spontaneous
  Country: JP (occurrence: JP)
  Receive Date: 20160211
  Receipt Date: 20160328
  Transmission Date: 20160526
  Serious: Yes (Other)
  Sender: FDA-Public Use
  Company Number: JP-SA-2016SA024459

PATIENT
  Age: 72 Year
  Sex: Male

DRUGS (2)
  1. DOCETAXEL. [Suspect]
     Active Substance: DOCETAXEL
     Indication: INTRAVASCULAR PAPILLARY ENDOTHELIAL HYPERPLASIA
     Dosage: INFUSION, PER WEEK FOR 3 WEEKS, FOLLOWED BY 1 WEEK OFF
     Route: 065
  2. DOCETAXEL. [Suspect]
     Active Substance: DOCETAXEL
     Indication: CHEMOTHERAPY
     Dosage: INFUSION, PER WEEK FOR 3 WEEKS, FOLLOWED BY 1 WEEK OFF
     Route: 065

REACTIONS (3)
  - Diarrhoea [Unknown]
  - Product use issue [Unknown]
  - Hypovolaemic shock [Unknown]
